FAERS Safety Report 8755932 (Version 4)
Quarter: 2015Q4

REPORT INFORMATION
  Report Type: Spontaneous
  Country: US (occurrence: None)
  Receive Date: 20120814
  Receipt Date: 20151105
  Transmission Date: 20160305
  Serious: Yes (Hospitalization, Other)
  Sender: FDA-Public Use
  Company Number: ADR-2012-01468

PATIENT
  Sex: Male

DRUGS (1)
  1. LIORESAL [Suspect]
     Active Substance: BACLOFEN
     Indication: MUSCLE SPASTICITY
     Dosage: 550

REACTIONS (13)
  - Overdose [None]
  - Head discomfort [None]
  - Drug withdrawal syndrome [None]
  - Paraesthesia [None]
  - Vomiting [None]
  - Hypoaesthesia [None]
  - Gait disturbance [None]
  - Drug interaction [None]
  - Pain in extremity [None]
  - Cerebrospinal fluid leakage [None]
  - Muscle spasticity [None]
  - Malaise [None]
  - Formication [None]
